FAERS Safety Report 4604680-7 (Version None)
Quarter: 2005Q2

REPORT INFORMATION
  Report Type: 
  Country: None (occurrence: None)
  Receive Date: 20050223
  Receipt Date: 20041113
  Transmission Date: 20051028
  Serious: No
  Sender: FDA-Public Use
  Company Number: PHEH2004US12301

PATIENT
  Sex: Female

DRUGS (2)
  1. ZELNORM [Suspect]
     Dosage: 6 MG, BID
  2. NARDIL [Suspect]
     Dosage: 60 MG, QD, UNK

REACTIONS (4)
  - DIZZINESS [None]
  - DRUG INTERACTION [None]
  - HEADACHE [None]
  - NAUSEA [None]
